FAERS Safety Report 5327318-2 (Version None)
Quarter: 2007Q2

REPORT INFORMATION
  Report Type: 
  Country: None (occurrence: None)
  Receive Date: 20070511
  Receipt Date: 20070507
  Transmission Date: 20071010
  Serious: Yes (Death, Hospitalization, Other)
  Sender: FDA-Public Use
  Company Number: 163-21880-06081377

PATIENT
  Age: 68 Year
  Sex: Male

DRUGS (6)
  1. REVLIMID [Suspect]
     Indication: MYELODYSPLASTIC SYNDROME
     Dosage: 10 MG, 1 IN 1 D, ORAL
     Route: 048
     Dates: start: 20060720, end: 20060701
  2. REVLIMID [Suspect]
     Indication: MYELODYSPLASTIC SYNDROME
     Dosage: 10 MG, 1 IN 1 D, ORAL
     Route: 048
     Dates: start: 20061005, end: 20061008
  3. LOVENOX [Concomitant]
  4. VALACYCLOVIR (VALACICLOVIR) [Concomitant]
  5. VORCICONAZOLE (VORICONAZOLE) [Concomitant]
  6. DARBEPOETIN (DARBEPOETIN ALFA) [Concomitant]

REACTIONS (14)
  - ATRIAL FIBRILLATION [None]
  - BACTERIAL INFECTION [None]
  - CELLULITIS [None]
  - DISEASE PROGRESSION [None]
  - ERYTHEMA [None]
  - HYPOXIA [None]
  - MENTAL STATUS CHANGES [None]
  - MULTI-ORGAN FAILURE [None]
  - MYELODYSPLASTIC SYNDROME [None]
  - PNEUMONIA [None]
  - PNEUMONIA FUNGAL [None]
  - RENAL FAILURE [None]
  - RESPIRATORY FAILURE [None]
  - SEPSIS [None]
